FAERS Safety Report 9439716 (Version 1)
Quarter: 2013Q3

REPORT INFORMATION
  Report Type: Spontaneous
  Country: US (occurrence: US)
  Receive Date: 20130805
  Receipt Date: 20130805
  Transmission Date: 20140515
  Serious: No
  Sender: FDA-Public Use
  Company Number: US-PFIZER INC-2013219935

PATIENT
  Age: 52 Year
  Sex: Male

DRUGS (1)
  1. BOSULIF [Suspect]
     Indication: NEOPLASM MALIGNANT
     Dosage: 100 MG, UNK
     Route: 048
     Dates: start: 20130722

REACTIONS (4)
  - Nausea [Not Recovered/Not Resolved]
  - Diarrhoea [Not Recovered/Not Resolved]
  - Fatigue [Not Recovered/Not Resolved]
  - Eating disorder [Not Recovered/Not Resolved]
